FAERS Safety Report 4447438-4 (Version None)
Quarter: 2004Q3

REPORT INFORMATION
  Report Type: 
  Country: None (occurrence: None)
  Receive Date: 20040913
  Receipt Date: 20040831
  Transmission Date: 20050211
  Serious: Yes (Hospitalization)
  Sender: FDA-Public Use
  Company Number: US-JNJFOC-20040900992

PATIENT
  Sex: Female
  Weight: 68.04 kg

DRUGS (1)
  1. REMICADE [Suspect]
     Indication: RHEUMATOID ARTHRITIS
     Route: 042

REACTIONS (9)
  - ABDOMINAL ADHESIONS [None]
  - APHASIA [None]
  - CEREBRAL DISORDER [None]
  - COMA [None]
  - DECUBITUS ULCER [None]
  - RESPIRATORY FAILURE [None]
  - STAPHYLOCOCCAL INFECTION [None]
  - UROSEPSIS [None]
  - WEIGHT DECREASED [None]
